FAERS Safety Report 23216361 (Version 2)
Quarter: 2023Q4

REPORT INFORMATION
  Report Type: Report from Study
  Country: BR (occurrence: BR)
  Receive Date: 20231122
  Receipt Date: 20231128
  Transmission Date: 20240110
  Serious: Yes (Hospitalization)
  Sender: FDA-Public Use
  Company Number: BR-JNJFOC-20231139042

PATIENT
  Age: 38 Year
  Sex: Female

DRUGS (3)
  1. SIMPONI [Suspect]
     Active Substance: GOLIMUMAB
     Indication: Ankylosing spondylitis
     Route: 058
  2. SIMPONI [Suspect]
     Active Substance: GOLIMUMAB
  3. LEVOFLOXACIN [Suspect]
     Active Substance: LEVOFLOXACIN
     Route: 065

REACTIONS (5)
  - Anaphylactic reaction [Unknown]
  - Abnormal loss of weight [Unknown]
  - Gluten sensitivity [Unknown]
  - Food allergy [Unknown]
  - Skin infection [Unknown]

NARRATIVE: CASE EVENT DATE: 20231113
